FAERS Safety Report 13110816 (Version 1)
Quarter: 2017Q1

REPORT INFORMATION
  Report Type: Spontaneous
  Country: GB (occurrence: GB)
  Receive Date: 20170112
  Receipt Date: 20170112
  Transmission Date: 20170428
  Serious: Yes (Life-Threatening, Hospitalization, Disabling, Congenital Anomaly)
  Sender: FDA-Public Use
  Company Number: GB-B.I. PHARMACEUTICALS,INC./RIDGEFIELD-2005-UK-02169UK

PATIENT
  Age: 18 Month
  Sex: Female

DRUGS (2)
  1. VIRAMUNE [Suspect]
     Active Substance: NEVIRAPINE
     Indication: RETROVIRAL INFECTION
     Route: 015
     Dates: start: 20040116
  2. COMBIVIR [Suspect]
     Active Substance: LAMIVUDINE\ZIDOVUDINE
     Indication: RETROVIRAL INFECTION
     Route: 015
     Dates: start: 20040116

REACTIONS (1)
  - Congenital retinoblastoma [Not Recovered/Not Resolved]

NARRATIVE: CASE EVENT DATE: 200509
